FAERS Safety Report 8960570 (Version 1)
Quarter: 2012Q4

REPORT INFORMATION
  Report Type: Spontaneous
  Country: US (occurrence: None)
  Receive Date: 20121207
  Receipt Date: 20121207
  Transmission Date: 20130627
  Serious: Yes (Other)
  Sender: FDA-Public Use
  Company Number: None

PATIENT
  Age: 48 Year
  Sex: Male

DRUGS (1)
  1. SPRYCEL [Suspect]
     Indication: CANCER
     Dosage: 140mg qd days 1-14 po
     Route: 048
     Dates: start: 20121011, end: 20121201

REACTIONS (1)
  - Therapy cessation [None]
